FAERS Safety Report 7363239-1 (Version None)
Quarter: 2011Q1

REPORT INFORMATION
  Report Type: 
  Country: None (occurrence: None)
  Receive Date: 20110321
  Receipt Date: 20110221
  Transmission Date: 20110831
  Serious: No
  Sender: FDA-Public Use
  Company Number: US-B.I. PHARMACEUTICALS,INC./RIDGEFIELD-2011-BP-06435BP

PATIENT
  Sex: Female

DRUGS (12)
  1. ASPIRIN [Concomitant]
     Indication: PROPHYLAXIS
     Dosage: 81 MG
  2. VITAMIN D [Concomitant]
     Indication: PROPHYLAXIS
  3. OXCARBAZEPINE [Concomitant]
     Indication: TRIGEMINAL NEURALGIA
     Dosage: 600 MG
     Dates: start: 20070101
  4. CALCIUM [Concomitant]
     Indication: PROPHYLAXIS
  5. PRADAXA [Suspect]
     Indication: ATRIAL FIBRILLATION
     Dosage: 300 MG
     Route: 048
     Dates: start: 20110219
  6. PANTOPRAZOLE [Concomitant]
     Indication: PROPHYLAXIS
     Dosage: 40 MG
  7. MULTI-VITAMIN [Concomitant]
     Indication: PROPHYLAXIS
  8. METOPROLOL [Concomitant]
     Indication: ATRIAL FIBRILLATION
     Dosage: 150 MG
  9. LIPITOR [Concomitant]
     Indication: BLOOD CHOLESTEROL INCREASED
     Dosage: 20 MG
  10. GLUCOSAMINE [Concomitant]
     Indication: PROPHYLAXIS
  11. BENICAR [Concomitant]
     Indication: HYPERTENSION
     Dosage: 20 MG
     Dates: start: 20080101
  12. FUROSEMIDE [Concomitant]
     Indication: ATRIAL FIBRILLATION
     Dosage: 80 MG

REACTIONS (2)
  - HYPOTENSION [None]
  - DIZZINESS [None]
